FAERS Safety Report 10065882 (Version 1)
Quarter: 2014Q1

REPORT INFORMATION
  Report Type: Spontaneous
  Country: None (occurrence: None)
  Receive Date: 20140328
  Receipt Date: 20140328
  Transmission Date: 20141002
  Serious: No
  Sender: FDA-Public Use
  Company Number: 1000054128

PATIENT
  Sex: Male

DRUGS (2)
  1. LINZESS [Suspect]
     Dates: start: 201402, end: 201402
  2. BENICAR (OLMESARTAN MEDOXOMIL) [Concomitant]

REACTIONS (1)
  - Diarrhoea [None]
